FAERS Safety Report 4779810-7 (Version None)
Quarter: 2005Q3

REPORT INFORMATION
  Report Type: 
  Country: None (occurrence: None)
  Receive Date: 20050927
  Receipt Date: 20050919
  Transmission Date: 20060218
  Serious: Yes (Other)
  Sender: FDA-Public Use
  Company Number: US-JNJFOC-20050905079

PATIENT
  Sex: Female

DRUGS (2)
  1. FENTANYL [Suspect]
     Dosage: ONE 100 UG/HR PATCH PLUS ONE 50 UG/HR PATCH
     Route: 062
  2. UNSPECIFIED PAIN MEDICATIONS [Concomitant]
     Indication: PAIN

REACTIONS (3)
  - FALL [None]
  - HUMERUS FRACTURE [None]
  - THERAPEUTIC RESPONSE DECREASED [None]
